FAERS Safety Report 5749831-6 (Version None)
Quarter: 2008Q2

REPORT INFORMATION
  Report Type: 
  Country: None (occurrence: None)
  Receive Date: 20080527
  Receipt Date: 20080516
  Transmission Date: 20081010
  Serious: Yes (Other)
  Sender: FDA-Public Use
  Company Number: US-BAYER-200823387NA

PATIENT
  Age: 43 Year
  Sex: Male
  Weight: 109 kg

DRUGS (12)
  1. MAGNEVIST [Suspect]
     Indication: NUCLEAR MAGNETIC RESONANCE IMAGING BRAIN
     Dosage: TOTAL DAILY DOSE: 20 ML  UNIT DOSE: 20 ML
     Route: 042
     Dates: start: 20080516, end: 20080516
  2. GLUCOVANCE [Concomitant]
  3. AVANDIA [Concomitant]
  4. BENAZEPRIL HYDROCHLORIDE [Concomitant]
  5. HYDROCHLOROTHIAZIDE [Concomitant]
  6. LANTUS [Concomitant]
  7. ZETIA [Concomitant]
  8. TOPAMAX [Concomitant]
  9. PHENOBARBITAL TAB [Concomitant]
  10. TRILEPTAL [Concomitant]
  11. LIPITOR [Concomitant]
  12. ASPIRIN [Concomitant]

REACTIONS (2)
  - PHARYNGEAL OEDEMA [None]
  - THROAT IRRITATION [None]
